FAERS Safety Report 5108928-4 (Version None)
Quarter: 2006Q3

REPORT INFORMATION
  Report Type: 
  Country: None (occurrence: None)
  Receive Date: 20060920
  Receipt Date: 20060908
  Transmission Date: 20061208
  Serious: Yes (Hospitalization)
  Sender: FDA-Public Use
  Company Number: US-JNJFOC-20060902283

PATIENT
  Age: 11 Year
  Sex: Female
  Weight: 32.66 kg

DRUGS (1)
  1. CONCERTA [Suspect]
     Indication: OVERDOSE
     Route: 048

REACTIONS (7)
  - ABNORMAL BEHAVIOUR [None]
  - BLOOD PRESSURE INCREASED [None]
  - CRYING [None]
  - GAIT DISTURBANCE [None]
  - HYPERVENTILATION [None]
  - MEDICATION ERROR [None]
  - POSTURING [None]
